FAERS Safety Report 5599514-0 (Version None)
Quarter: 2008Q1

REPORT INFORMATION
  Report Type: 
  Country: None (occurrence: None)
  Receive Date: 20080123
  Receipt Date: 20080114
  Transmission Date: 20080703
  Serious: Yes (Other)
  Sender: FDA-Public Use
  Company Number: US-JNJFOC-20080103171

PATIENT
  Age: 16 Year
  Sex: Male

DRUGS (2)
  1. TYLENOL [Suspect]
     Indication: INFLUENZA
  2. TYLENOL [Suspect]
     Indication: PYREXIA

REACTIONS (1)
  - CONVULSION [None]
